FAERS Safety Report 6708900-4 (Version None)
Quarter: 2010Q2

REPORT INFORMATION
  Report Type: 
  Country: None (occurrence: None)
  Receive Date: 20100504
  Receipt Date: 20100427
  Transmission Date: 20101027
  Serious: Yes (Hospitalization)
  Sender: FDA-Public Use
  Company Number: JP-ELI_LILLY_AND_COMPANY-JP201004007029

PATIENT

DRUGS (1)
  1. HUMATROPE [Suspect]
     Route: 058

REACTIONS (1)
  - HOSPITALISATION [None]
